FAERS Safety Report 6227320-2 (Version None)
Quarter: 2009Q2

REPORT INFORMATION
  Report Type: 
  Country: None (occurrence: None)
  Receive Date: 20090612
  Receipt Date: 20090602
  Transmission Date: 20091009
  Serious: Yes (Other)
  Sender: FDA-Public Use
  Company Number: US-JNJFOC-20090601871

PATIENT
  Age: 49 Year
  Sex: Male

DRUGS (4)
  1. PREZISTA [Suspect]
     Indication: HIV INFECTION
     Route: 048
  2. RITONAVIR [Suspect]
     Indication: HIV INFECTION
     Route: 048
  3. COMBIVIR [Concomitant]
     Indication: HIV INFECTION
  4. KALETRA [Concomitant]

REACTIONS (3)
  - EYE DISCHARGE [None]
  - EYELID MARGIN CRUSTING [None]
  - HYPERSENSITIVITY [None]
